FAERS Safety Report 5329168-X (Version None)
Quarter: 2007Q2

REPORT INFORMATION
  Report Type: 
  Country: None (occurrence: None)
  Receive Date: 20070518
  Receipt Date: 20070508
  Transmission Date: 20071010
  Serious: Yes (Hospitalization, Other)
  Sender: FDA-Public Use
  Company Number: US-PFIZER INC-2007013411

PATIENT
  Sex: Female
  Weight: 86.2 kg

DRUGS (3)
  1. BEXTRA [Suspect]
     Indication: ARTHRITIS
     Route: 048
  2. BEXTRA [Suspect]
     Indication: PAIN
  3. BEXTRA [Suspect]
     Indication: MUSCULOSKELETAL PAIN

REACTIONS (5)
  - ANXIETY [None]
  - DEEP VEIN THROMBOSIS [None]
  - DEPRESSION [None]
  - IMPAIRED HEALING [None]
  - PULMONARY EMBOLISM [None]
